FAERS Safety Report 10071192 (Version 1)
Quarter: 2014Q2

REPORT INFORMATION
  Report Type: Spontaneous
  Country: IT (occurrence: IT)
  Receive Date: 20140410
  Receipt Date: 20140410
  Transmission Date: 20141212
  Serious: Yes (Life-Threatening)
  Sender: FDA-Public Use
  Company Number: PHHY2014IT040281

PATIENT
  Sex: Male

DRUGS (8)
  1. METFORMIN [Suspect]
     Indication: DIABETES MELLITUS
     Dosage: 2 G, QD
     Route: 048
     Dates: start: 20130110, end: 20140206
  2. RAMIPRIL [Interacting]
     Indication: MYOCARDIAL ISCHAEMIA
     Dosage: UNK UKN, UNK
     Dates: start: 20130701, end: 20140206
  3. COMPETACT [Interacting]
     Dosage: 2 DF, QD
     Route: 048
     Dates: start: 20130701, end: 20140206
  4. FUROSEMIDE [Interacting]
     Indication: MYOCARDIAL ISCHAEMIA
     Dosage: 1 DF, QD
     Dates: start: 20130701, end: 20140206
  5. DILATREND [Concomitant]
     Dosage: 1 DF, UNK
     Route: 048
     Dates: start: 20130701, end: 20140206
  6. CARDIOASPIRIN [Concomitant]
     Dosage: 1 DF, UNK
     Route: 048
     Dates: start: 20130701, end: 20140206
  7. LEVEMIR [Concomitant]
     Dosage: 20 U, UNK
     Route: 058
  8. SIVASTIN [Concomitant]
     Dosage: 1 DF, UNK
     Dates: start: 20130701, end: 20140206

REACTIONS (2)
  - Renal failure acute [Recovering/Resolving]
  - Lactic acidosis [Recovering/Resolving]
